FAERS Safety Report 16272359 (Version 1)
Quarter: 2019Q2

REPORT INFORMATION
  Report Type: Report from Study
  Country: CA (occurrence: CA)
  Receive Date: 20190503
  Receipt Date: 20190503
  Transmission Date: 20190711
  Serious: Yes (Death, Hospitalization)
  Sender: FDA-Public Use
  Company Number: CA-ACTELION-A-NJ2018-166657

PATIENT
  Age: 81 Year
  Sex: Male
  Weight: 99.77 kg

DRUGS (12)
  1. TRACLEER [Suspect]
     Active Substance: BOSENTAN
     Indication: PULMONARY ARTERIAL HYPERTENSION
     Dosage: 125 MG, UNK
     Route: 048
  2. FUROSEMIDE. [Concomitant]
     Active Substance: FUROSEMIDE
  3. CLOPIDOGREL [Concomitant]
     Active Substance: CLOPIDOGREL BISULFATE
  4. INSULIN [Concomitant]
     Active Substance: INSULIN NOS
  5. ROSUVASTATIN. [Concomitant]
     Active Substance: ROSUVASTATIN
  6. AMLODIPINE [Concomitant]
     Active Substance: AMLODIPINE BESYLATE
  7. HUMALOG [Concomitant]
     Active Substance: INSULIN LISPRO
  8. COVERSYL [Concomitant]
     Active Substance: PERINDOPRIL
  9. TRACLEER [Suspect]
     Active Substance: BOSENTAN
     Dosage: 125 MG, BID
     Route: 048
     Dates: start: 20150826, end: 201804
  10. ADCIRCA [Concomitant]
     Active Substance: TADALAFIL
  11. HYDREA [Concomitant]
     Active Substance: HYDROXYUREA
  12. ASA [Concomitant]
     Active Substance: ASPIRIN

REACTIONS (5)
  - Pruritus generalised [Not Recovered/Not Resolved]
  - Pain [Unknown]
  - Malaise [Not Recovered/Not Resolved]
  - Peripheral swelling [Unknown]
  - Death [Fatal]

NARRATIVE: CASE EVENT DATE: 20180123
